FAERS Safety Report 7832018-0 (Version None)
Quarter: 2011Q4

REPORT INFORMATION
  Report Type: 
  Country: None (occurrence: None)
  Receive Date: 20111021
  Receipt Date: 20111012
  Transmission Date: 20120403
  Serious: Yes (Hospitalization)
  Sender: FDA-Public Use
  Company Number: DE-ASTRAZENECA-2011SE62036

PATIENT
  Age: 44 Year
  Sex: Male

DRUGS (3)
  1. MEROPENEM [Suspect]
     Indication: SEPSIS
     Route: 042
  2. MOXIFLOXACIN [Suspect]
     Indication: SEPSIS
  3. VANCOMYCIN HCL [Suspect]
     Indication: SEPSIS

REACTIONS (4)
  - RASH MACULO-PAPULAR [None]
  - RENAL FAILURE ACUTE [None]
  - DRUG HYPERSENSITIVITY [None]
  - TUBULOINTERSTITIAL NEPHRITIS [None]
